FAERS Safety Report 9242749 (Version 1)
Quarter: 2013Q2

REPORT INFORMATION
  Report Type: Report from Study
  Country: DE (occurrence: DE)
  Receive Date: 20130419
  Receipt Date: 20130419
  Transmission Date: 20140414
  Serious: Yes (Hospitalization)
  Sender: FDA-Public Use
  Company Number: DE-ROCHE-1215938

PATIENT
  Age: 82 Year
  Sex: Male

DRUGS (6)
  1. RITUXIMAB [Suspect]
     Indication: CHRONIC LYMPHOCYTIC LEUKAEMIA
     Dosage: DAILY
     Route: 042
     Dates: start: 20110113
  2. BENDAMUSTINE [Suspect]
     Indication: CHRONIC LYMPHOCYTIC LEUKAEMIA
     Dosage: DAILY. LAST DOSE PRIOR TO SAE: 19/JAN/2011
     Route: 042
     Dates: start: 20110118
  3. LISINOPRIL [Concomitant]
     Route: 065
     Dates: start: 1990
  4. FUROSEMIDE [Concomitant]
     Route: 065
     Dates: start: 1990
  5. ALLOPURINOL [Concomitant]
     Route: 065
     Dates: start: 1990
  6. FELODIPIN [Concomitant]
     Route: 065
     Dates: start: 1990

REACTIONS (1)
  - Constipation [Recovered/Resolved]
